FAERS Safety Report 5100501-7 (Version None)
Quarter: 2006Q3

REPORT INFORMATION
  Report Type: 
  Country: None (occurrence: None)
  Receive Date: 20060907
  Receipt Date: 20060907
  Transmission Date: 20061208
  Serious: Yes (Hospitalization)
  Sender: FDA-Public Use
  Company Number: None

PATIENT
  Sex: Male
  Weight: 80.8 kg

DRUGS (3)
  1. FLUOROURACIL [Suspect]
     Indication: TONGUE NEOPLASM MALIGNANT STAGE UNSPECIFIED
     Dosage: 600 MG/M2 IV QD X5
     Route: 042
     Dates: start: 20060827, end: 20060901
  2. HYDREA [Suspect]
     Indication: TONGUE NEOPLASM MALIGNANT STAGE UNSPECIFIED
     Dosage: 500 MG PO QD BID
     Route: 048
     Dates: start: 20060827, end: 20060901
  3. IRESSA [Suspect]
     Indication: TONGUE NEOPLASM MALIGNANT STAGE UNSPECIFIED
     Dosage: 500 MG PO QD
     Route: 048
     Dates: start: 20060827

REACTIONS (2)
  - BODY TEMPERATURE INCREASED [None]
  - MUCOSAL INFLAMMATION [None]
